FAERS Safety Report 16203148 (Version 2)
Quarter: 2019Q2

REPORT INFORMATION
  Report Type: Spontaneous
  Country: PL (occurrence: PL)
  Receive Date: 20190416
  Receipt Date: 20190429
  Transmission Date: 20190711
  Serious: Yes (Disabling, Other)
  Sender: FDA-Public Use
  Company Number: PL-MYLANLABS-2019M1035421

PATIENT
  Age: 65 Year
  Sex: Female

DRUGS (10)
  1. MIANSERIN [Interacting]
     Active Substance: MIANSERIN
     Dosage: 10 MILLIGRAM, QD
     Route: 065
  2. VENLAFAXINE [Interacting]
     Active Substance: VENLAFAXINE HYDROCHLORIDE
     Dosage: UNK,INITIAL DOSE
  3. TRAMADOL. [Suspect]
     Active Substance: TRAMADOL
     Indication: GLOSSODYNIA
     Dosage: UNK,75 MG + 650 MG IN ONE TABLET RESPECTIVELY
  4. METFORMIN [Concomitant]
     Active Substance: METFORMIN HYDROCHLORIDE
     Indication: TYPE 2 DIABETES MELLITUS
     Dosage: 2000 MILLIGRAM, QD
     Route: 065
  5. VENLAFAXINE [Suspect]
     Active Substance: VENLAFAXINE HYDROCHLORIDE
     Indication: DEPRESSION
     Dosage: 225 MILLIGRAM, QD
     Route: 065
  6. GABAPENTIN. [Suspect]
     Active Substance: GABAPENTIN
     Indication: GLOSSODYNIA
     Dosage: 300 MILLIGRAM, Q8H,3 TIMES IN DAY
  7. MIANSERIN [Interacting]
     Active Substance: MIANSERIN
     Indication: SLEEP DISORDER
     Dosage: UNK,INITIAL DOSE
  8. VENLAFAXINE [Interacting]
     Active Substance: VENLAFAXINE HYDROCHLORIDE
     Dosage: 75 MILLIGRAM, QD
     Route: 065
  9. MIANSERIN [Interacting]
     Active Substance: MIANSERIN
     Dosage: 30 MILLIGRAM, QD,THEN THE DOSE INCREASED TO 30 MG DAILY
     Route: 065
  10. PARACETAMOL/TRAMADOL [Interacting]
     Active Substance: ACETAMINOPHEN\TRAMADOL
     Indication: GLOSSODYNIA
     Dosage: UNK,75 MG + 650 MG IN 1 TABLET

REACTIONS (12)
  - Drug interaction [Recovered/Resolved]
  - Glossodynia [Recovered/Resolved]
  - Dizziness [Unknown]
  - Hyperhidrosis [Unknown]
  - Blood glucose abnormal [Unknown]
  - Diabetes mellitus [Unknown]
  - Increased appetite [Unknown]
  - Pain [Not Recovered/Not Resolved]
  - Sedation complication [Unknown]
  - Fatigue [Unknown]
  - Therapeutic product effect incomplete [Recovered/Resolved]
  - Off label use [Unknown]
